FAERS Safety Report 17359361 (Version 2)
Quarter: 2020Q1

REPORT INFORMATION
  Report Type: Report from Study
  Country: PL (occurrence: PL)
  Receive Date: 20200203
  Receipt Date: 20200211
  Transmission Date: 20200409
  Serious: Yes (Hospitalization)
  Sender: FDA-Public Use
  Company Number: PL-ROCHE-2535839

PATIENT
  Age: 69 Year
  Sex: Male

DRUGS (9)
  1. SITAGLIPTIN [Concomitant]
     Active Substance: SITAGLIPTIN
  2. VINPOCETINUM [Concomitant]
  3. ATEZOLIZUMAB. [Suspect]
     Active Substance: ATEZOLIZUMAB
     Indication: HEPATOCELLULAR CARCINOMA
     Dosage: ON 30/DEC/2019, HE RECEIVED THE MOST RECENT DOSE OF ATEZOLIZUMAB.
     Route: 042
     Dates: start: 20191025
  4. BISOPROLOLUM [Concomitant]
     Active Substance: BISOPROLOL FUMARATE
  5. ACETYLSALICYLIC ACID [Concomitant]
     Active Substance: ASPIRIN
  6. AMARYL [Concomitant]
     Active Substance: GLIMEPIRIDE
  7. CABOZANTINIB [Suspect]
     Active Substance: CABOZANTINIB
     Indication: HEPATOCELLULAR CARCINOMA
     Dosage: ON 15/JAN/2020, HE RECEIVED THE MOST RECENT DOSE OF CABOZANTINIB.
     Route: 048
     Dates: start: 20191025
  8. METFORMAX [Concomitant]
     Active Substance: METFORMIN HYDROCHLORIDE
  9. PROPAFENON [PROPAFENONE] [Concomitant]

REACTIONS (1)
  - Sepsis [Recovered/Resolved]

NARRATIVE: CASE EVENT DATE: 20200113
